FAERS Safety Report 22181669 (Version 4)
Quarter: 2023Q4

REPORT INFORMATION
  Report Type: Spontaneous
  Country: US (occurrence: US)
  Receive Date: 20230406
  Receipt Date: 20231204
  Transmission Date: 20240109
  Serious: Yes (Hospitalization, Other)
  Sender: FDA-Public Use
  Company Number: US-MLMSERVICE-20230327-4186277-1

PATIENT
  Age: 72 Year
  Sex: Male

DRUGS (3)
  1. ADRIAMYCIN [Suspect]
     Active Substance: DOXORUBICIN HYDROCHLORIDE
     Indication: Breast cancer stage IV
     Dosage: UNK, CYCLIC
  2. PEMBROLIZUMAB [Concomitant]
     Active Substance: PEMBROLIZUMAB
     Indication: Breast cancer stage IV
     Dosage: SECOND PHASE CONSISTED OF FOUR CYCLES OF PEMBROLIZUMAB, EVERY THREE WEEKS
  3. CYCLOPHOSPHAMIDE [Concomitant]
     Active Substance: CYCLOPHOSPHAMIDE
     Indication: Breast cancer stage IV
     Dosage: UNK, CYCLIC

REACTIONS (2)
  - Sepsis [Unknown]
  - Febrile neutropenia [Unknown]
